FAERS Safety Report 8406701-2 (Version None)
Quarter: 2012Q2

REPORT INFORMATION
  Report Type: 
  Country: None (occurrence: None)
  Receive Date: 20120604
  Receipt Date: 20120524
  Transmission Date: 20120825
  Serious: Yes (Hospitalization)
  Sender: FDA-Public Use
  Company Number: NL-AMGEN-NLDSP2012011437

PATIENT
  Age: 47 Year
  Sex: Male

DRUGS (4)
  1. PENIDURAL                          /00000903/ [Concomitant]
     Dosage: UNK UNK, UNK
  2. PENIDURAL [Concomitant]
  3. ENBREL [Suspect]
     Indication: PSORIATIC ARTHROPATHY
     Dosage: 50 MG, WEEKLY
     Dates: start: 20090101
  4. ENBREL [Suspect]
     Dosage: 50 MG, WEEKLY
     Dates: start: 20090101

REACTIONS (5)
  - DIARRHOEA [None]
  - LYMPHADENOPATHY [None]
  - ABDOMINAL PAIN [None]
  - PANCREATITIS [None]
  - COUGH [None]
